FAERS Safety Report 9813877 (Version 2)
Quarter: 2014Q1

REPORT INFORMATION
  Report Type: Spontaneous
  Country: US (occurrence: US)
  Receive Date: 20140113
  Receipt Date: 20140203
  Transmission Date: 20141002
  Serious: Yes (Hospitalization, Other)
  Sender: FDA-Public Use
  Company Number: US-MPIJNJ-2014MPI000024

PATIENT
  Age: 58 Year
  Sex: Female
  Weight: 72 kg

DRUGS (16)
  1. VELCADE [Suspect]
     Indication: PLASMA CELL MYELOMA
     Dosage: 1.3 MG/M2, ON DAYS 1, 8, 15 AND 21
     Route: 058
     Dates: start: 20131218, end: 20131225
  2. VELCADE [Suspect]
     Dosage: 2.3 MG, UNK
     Route: 058
     Dates: start: 20131225
  3. CYCLOPHOSPHAMIDE [Suspect]
     Indication: PLASMA CELL MYELOMA
     Dosage: 300 MG/M2, ON DAY 1
     Route: 040
     Dates: start: 20131218, end: 20131218
  4. DEXAMETHASONE [Suspect]
     Indication: PLASMA CELL MYELOMA
     Dosage: 40 MG, DAY 8 AND 9
     Dates: start: 20131225
  5. FLUTICASONE W/SALMETEROL [Concomitant]
     Dosage: UNK, BID
     Route: 055
     Dates: start: 20131218
  6. ONDANSETRON [Concomitant]
     Dosage: 8 MG, Q6HR
     Dates: start: 20131216
  7. ONDANSETRON [Concomitant]
     Dosage: 4 UNK, Q6H
     Route: 030
     Dates: start: 20131221
  8. CITALOPRAM [Concomitant]
     Dosage: 20 MG, UNK, QD
     Dates: start: 20131216
  9. ALBUTEROL                          /00139501/ [Concomitant]
     Dosage: UNK, Q4HR
     Route: 048
     Dates: start: 20131218
  10. ACYCLOVIR                          /00587301/ [Concomitant]
     Indication: PROPHYLAXIS
     Dosage: 400 MG, QD
     Dates: start: 20131218
  11. ALLOPURINOL [Concomitant]
     Dosage: 100 MG, QD
     Dates: start: 20131220
  12. COUMADIN                           /00014802/ [Concomitant]
  13. VITAMIN K                          /00032401/ [Concomitant]
  14. FENTANYL [Concomitant]
     Route: 003
  15. NEUROTIN                           /01003001/ [Concomitant]
  16. CYTOXAN [Concomitant]
     Dosage: 1350 MG, UNK
     Route: 042
     Dates: start: 20131218

REACTIONS (3)
  - Metabolic acidosis [Recovered/Resolved]
  - Tumour lysis syndrome [Recovered/Resolved]
  - Pancytopenia [Recovered/Resolved]
